FAERS Safety Report 6903709-0 (Version None)
Quarter: 2010Q3

REPORT INFORMATION
  Report Type: 
  Country: None (occurrence: None)
  Receive Date: 20100803
  Receipt Date: 20081117
  Transmission Date: 20110219
  Serious: No
  Sender: FDA-Public Use
  Company Number: US-PFIZER INC-2008097912

PATIENT
  Sex: Female
  Weight: 65.77 kg

DRUGS (3)
  1. LYRICA [Suspect]
     Indication: NEURALGIA
     Dates: start: 20080401
  2. ATENOLOL [Concomitant]
  3. ZOCOR [Concomitant]

REACTIONS (2)
  - THYROID MASS [None]
  - WEIGHT INCREASED [None]
